FAERS Safety Report 11076375 (Version 1)
Quarter: 2015Q2

REPORT INFORMATION
  Report Type: Report from Study
  Country: FR (occurrence: FR)
  Receive Date: 20150429
  Receipt Date: 20150429
  Transmission Date: 20150821
  Serious: Yes (Death)
  Sender: FDA-Public Use
  Company Number: FR-MYLANLABS-2015M1007321

PATIENT

DRUGS (3)
  1. M?THOTREXATE [Suspect]
     Active Substance: METHOTREXATE
     Indication: PSORIASIS
     Dosage: 15 MG, QW
     Route: 030
     Dates: start: 20121105
  2. M?THOTREXATE [Suspect]
     Active Substance: METHOTREXATE
     Dosage: 15 MG, QW
     Route: 030
     Dates: start: 20130304, end: 20140203
  3. NOVATREX (METHOTREXATE) [Suspect]
     Active Substance: METHOTREXATE SODIUM
     Indication: PRODUCT USED FOR UNKNOWN INDICATION

REACTIONS (6)
  - Sepsis [Fatal]
  - Psoriasis [Not Recovered/Not Resolved]
  - Anaemia [Unknown]
  - Platelet count increased [Unknown]
  - Skin ulcer [Fatal]
  - Blood creatinine increased [Unknown]

NARRATIVE: CASE EVENT DATE: 20130715
